FAERS Safety Report 5807450-7 (Version None)
Quarter: 2008Q3

REPORT INFORMATION
  Report Type: 
  Country: None (occurrence: None)
  Receive Date: 20080711
  Receipt Date: 20080703
  Transmission Date: 20090109
  Serious: Yes (Hospitalization)
  Sender: FDA-Public Use
  Company Number: JP-MERCK-0807USA00869

PATIENT
  Age: 83 Year
  Sex: Female

DRUGS (7)
  1. FOSAMAX [Suspect]
     Indication: OSTEOPOROSIS
     Route: 048
     Dates: start: 20071201, end: 20080618
  2. ACECOL [Suspect]
     Indication: HYPERTENSION
     Route: 048
     Dates: end: 20080618
  3. JUVELA [Concomitant]
     Indication: HYPERTENSION
     Route: 048
     Dates: end: 20080618
  4. MEVALOTIN [Suspect]
     Indication: HYPERLIPIDAEMIA
     Route: 048
     Dates: end: 20080618
  5. FAMOTIDINE [Suspect]
     Indication: REFLUX OESOPHAGITIS
     Route: 048
     Dates: end: 20080618
  6. CONIEL [Concomitant]
     Indication: HYPERTENSION
     Route: 048
     Dates: end: 20080618
  7. MUCOSTA [Concomitant]
     Indication: REFLUX OESOPHAGITIS
     Route: 048
     Dates: end: 20080618

REACTIONS (1)
  - WHITE BLOOD CELL COUNT DECREASED [None]
